FAERS Safety Report 21425935 (Version 5)
Quarter: 2024Q2

REPORT INFORMATION
  Report Type: Report from Study
  Country: US (occurrence: US)
  Receive Date: 20221008
  Receipt Date: 20240424
  Transmission Date: 20240715
  Serious: No
  Sender: FDA-Public Use
  Company Number: US-ABBVIE-4141492

PATIENT
  Age: 84 Year
  Sex: Female
  Weight: 35.38 kg

DRUGS (7)
  1. DUOPA [Suspect]
     Active Substance: CARBIDOPA\LEVODOPA
     Indication: Parkinson^s disease
     Route: 050
     Dates: start: 20220920
  2. DUOPA [Suspect]
     Active Substance: CARBIDOPA\LEVODOPA
  3. AMANTADINE [Concomitant]
     Active Substance: AMANTADINE
     Indication: Parkinson^s disease
  4. MIRAPEX [Concomitant]
     Active Substance: PRAMIPEXOLE DIHYDROCHLORIDE
     Indication: Parkinson^s disease
  5. RESTASIS [Concomitant]
     Active Substance: CYCLOSPORINE
     Indication: Eye disorder
  6. MODERNA COVID-19 VACCINE [Concomitant]
     Active Substance: ELASOMERAN
     Indication: COVID-19 immunisation
     Dosage: MODERNA
  7. MODERNA COVID-19 VACCINE [Concomitant]
     Active Substance: ELASOMERAN
     Indication: COVID-19 immunisation
     Dosage: MODERNA

REACTIONS (15)
  - Restless legs syndrome [Recovering/Resolving]
  - Gastrointestinal disorder [Not Recovered/Not Resolved]
  - Decreased appetite [Unknown]
  - Hallucination [Recovering/Resolving]
  - Drug ineffective [Not Recovered/Not Resolved]
  - Pain [Unknown]
  - General symptom [Unknown]
  - Formication [Recovering/Resolving]
  - Device issue [Recovered/Resolved]
  - Feeling abnormal [Unknown]
  - Speech disorder [Unknown]
  - Panic attack [Unknown]
  - Unevaluable event [Unknown]
  - Fear of falling [Unknown]
  - Fear [Unknown]

NARRATIVE: CASE EVENT DATE: 20220901
